FAERS Safety Report 5669489-4 (Version None)
Quarter: 2008Q1

REPORT INFORMATION
  Report Type: 
  Country: None (occurrence: None)
  Receive Date: 20080317
  Receipt Date: 20080310
  Transmission Date: 20080703
  Serious: Yes (Death)
  Sender: FDA-Public Use
  Company Number: JP-ASTRAZENECA-2008AP00597

PATIENT
  Age: 75 Year
  Sex: Male
  Weight: 47 kg

DRUGS (13)
  1. IRESSA [Suspect]
     Indication: SQUAMOUS CELL CARCINOMA
     Route: 048
     Dates: start: 20071206, end: 20080119
  2. MUCOSOLVAN [Concomitant]
     Route: 048
     Dates: start: 20070709, end: 20080123
  3. TAKEPRON [Concomitant]
     Route: 048
     Dates: start: 20070710, end: 20080123
  4. CYTOTEC [Concomitant]
     Route: 048
     Dates: start: 20070724, end: 20071214
  5. LAC-B [Concomitant]
     Route: 048
     Dates: start: 20070726, end: 20080123
  6. KLARICID [Concomitant]
     Route: 048
     Dates: start: 20070728, end: 20080123
  7. NAIXAN [Concomitant]
     Route: 048
     Dates: start: 20070802, end: 20071211
  8. CYANOCOBALAMIN [Concomitant]
     Route: 048
     Dates: start: 20071212, end: 20080123
  9. ALLEGRA [Concomitant]
     Route: 048
     Dates: start: 20071226, end: 20080111
  10. BAKTAR [Concomitant]
     Route: 048
     Dates: start: 20071227, end: 20080118
  11. PREDONINE [Concomitant]
     Dosage: TAPERED
     Route: 048
     Dates: start: 20071227, end: 20080119
  12. UNKNOWNDRUG [Concomitant]
     Route: 048
     Dates: end: 20071213
  13. UNKNOWNDRUG [Concomitant]
     Route: 048
     Dates: end: 20080123

REACTIONS (7)
  - CRYPTOGENIC ORGANISING PNEUMONIA [None]
  - DECREASED APPETITE [None]
  - DISSEMINATED INTRAVASCULAR COAGULATION [None]
  - LUNG DISORDER [None]
  - NAUSEA [None]
  - PNEUMONIA CYTOMEGALOVIRAL [None]
  - RADIATION PNEUMONITIS [None]
